FAERS Safety Report 9479571 (Version 1)
Quarter: 2013Q3

REPORT INFORMATION
  Report Type: Spontaneous
  Country: IT (occurrence: IT)
  Receive Date: 20130827
  Receipt Date: 20130827
  Transmission Date: 20140515
  Serious: Yes (Other)
  Sender: FDA-Public Use
  Company Number: IT-JNJFOC-20130807852

PATIENT
  Age: 13 Month
  Sex: Female

DRUGS (5)
  1. PARACETAMOL [Suspect]
     Route: 065
  2. PARACETAMOL [Suspect]
     Indication: PRODUCT USED FOR UNKNOWN INDICATION
     Route: 065
  3. VACCINES [Suspect]
     Indication: IMMUNISATION
     Route: 065
  4. INFLUENZA VACCINE [Suspect]
     Indication: IMMUNISATION
     Route: 065
  5. CEFACLOR [Suspect]
     Indication: PRODUCT USED FOR UNKNOWN INDICATION
     Route: 061

REACTIONS (1)
  - Stevens-Johnson syndrome [Recovered/Resolved]
